FAERS Safety Report 18280385 (Version 6)
Quarter: 2020Q4

REPORT INFORMATION
  Report Type: Report from Study
  Country: US (occurrence: US)
  Receive Date: 20200918
  Receipt Date: 20201117
  Transmission Date: 20210113
  Serious: Yes (Hospitalization)
  Sender: FDA-Public Use
  Company Number: US-ROCHE-2678368

PATIENT
  Age: 61 Year
  Sex: Male
  Weight: 76.2 kg

DRUGS (4)
  1. BEVACIZUMAB. [Suspect]
     Active Substance: BEVACIZUMAB
     Indication: TRANSITIONAL CELL CARCINOMA
     Dosage: DATE OF MOST RECENT DOSE OF BEVACIZUMAB ADMINISTERED PRIOR TO ONSET OF AE/SAE: 24/AUG/2020
     Route: 042
     Dates: start: 20200824
  2. BEVACIZUMAB. [Suspect]
     Active Substance: BEVACIZUMAB
     Dosage: DATE OF MOST RECENT DOSE OF BEVACIZUMAB ADMINISTERED PRIOR TO ONSET OF AE/SAE: 24/AUG/2020
     Route: 042
     Dates: start: 20200914
  3. ATEZOLIZUMAB. [Suspect]
     Active Substance: ATEZOLIZUMAB
     Indication: TRANSITIONAL CELL CARCINOMA
     Dosage: DATE OF MOST RECENT DOSE OF ATEZOLIZUMAB ADMINISTERED PRIOR TO ONSET OF AE/SAE: 24/AUG/2020
     Route: 042
     Dates: start: 20200824
  4. ATEZOLIZUMAB. [Suspect]
     Active Substance: ATEZOLIZUMAB
     Dosage: DATE OF MOST RECENT DOSE OF ATEZOLIZUMAB ADMINISTERED PRIOR TO ONSET OF AE/SAE: 24/AUG/2020
     Route: 042
     Dates: start: 20200914

REACTIONS (2)
  - Pyrexia [Recovered/Resolved with Sequelae]
  - Immune-mediated hepatitis [Recovered/Resolved]

NARRATIVE: CASE EVENT DATE: 20200908
